FAERS Safety Report 5283427-8 (Version None)
Quarter: 2007Q1

REPORT INFORMATION
  Report Type: 
  Country: None (occurrence: None)
  Receive Date: 20061226
  Receipt Date: 20061026
  Transmission Date: 20070707
  Serious: No
  Sender: FDA-Public Use
  Company Number: 2006PV024029

PATIENT
  Age: 61 Year
  Sex: Female
  Weight: 105.6881 kg

DRUGS (7)
  1. SYMLIN [Suspect]
     Indication: DIABETES MELLITUS NON-INSULIN-DEPENDENT
     Dosage: SEE IMAGE
     Route: 058
     Dates: start: 20061006, end: 20061001
  2. SYMLIN [Suspect]
     Indication: DIABETES MELLITUS NON-INSULIN-DEPENDENT
     Dosage: SEE IMAGE
     Route: 058
     Dates: start: 20061009, end: 20061001
  3. SYMLIN [Suspect]
     Indication: DIABETES MELLITUS NON-INSULIN-DEPENDENT
     Dosage: SEE IMAGE
     Route: 058
     Dates: start: 20061012, end: 20061014
  4. SYMLIN [Suspect]
     Indication: DIABETES MELLITUS NON-INSULIN-DEPENDENT
     Dosage: SEE IMAGE
     Route: 058
     Dates: start: 20061015
  5. GLUCOPHAGE [Concomitant]
  6. NOVOLOG [Concomitant]
  7. SYNTHROID [Concomitant]

REACTIONS (4)
  - FATIGUE [None]
  - GAIT DISTURBANCE [None]
  - MEDICATION ERROR [None]
  - SENSATION OF HEAVINESS [None]
